FAERS Safety Report 19431955 (Version 2)
Quarter: 2023Q1

REPORT INFORMATION
  Report Type: Spontaneous
  Country: US (occurrence: US)
  Receive Date: 20210617
  Receipt Date: 20230117
  Transmission Date: 20230418
  Serious: Yes (Other)
  Sender: FDA-Public Use
  Company Number: US-PFIZER INC-2021658068

PATIENT
  Age: 78 Year
  Sex: Female
  Weight: 70.3 kg

DRUGS (1)
  1. IBRANCE [Suspect]
     Active Substance: PALBOCICLIB
     Indication: Breast cancer female
     Dosage: DAILY FOR 21 DAYS
     Route: 048
     Dates: start: 20200210

REACTIONS (2)
  - Pulmonary embolism [Unknown]
  - Platelet count decreased [Unknown]
